FAERS Safety Report 13395849 (Version 1)
Quarter: 2017Q2

REPORT INFORMATION
  Report Type: Other
  Country: US (occurrence: US)
  Receive Date: 20170403
  Receipt Date: 20170403
  Transmission Date: 20170830
  Serious: Yes (Hospitalization, Other)
  Sender: FDA-Public Use
  Company Number: US-ACORDA-ACO_133903_2017

PATIENT
  Sex: Female

DRUGS (2)
  1. PLEGRIDY [Suspect]
     Active Substance: PEGINTERFERON BETA-1A
     Indication: MULTIPLE SCLEROSIS
     Dosage: 125 MCG, Q 2 WKS
     Route: 058
     Dates: end: 201612
  2. AMPYRA [Suspect]
     Active Substance: DALFAMPRIDINE
     Indication: MULTIPLE SCLEROSIS
     Dosage: 10 MG, Q 12 HRS
     Route: 048

REACTIONS (10)
  - Hepatitis [Unknown]
  - Speech disorder [Unknown]
  - Ataxia [Unknown]
  - Encephalopathy [Unknown]
  - Aphasia [Unknown]
  - Nuclear magnetic resonance imaging abnormal [Unknown]
  - Hypersensitivity [Not Recovered/Not Resolved]
  - Seizure [Unknown]
  - Memory impairment [Unknown]
  - Sinusitis [Unknown]

NARRATIVE: CASE EVENT DATE: 2016
